FAERS Safety Report 13073502 (Version 1)
Quarter: 2016Q4

REPORT INFORMATION
  Report Type: Spontaneous
  Country: IT (occurrence: IT)
  Receive Date: 20161229
  Receipt Date: 20161229
  Transmission Date: 20170207
  Serious: Yes (Life-Threatening, Hospitalization)
  Sender: FDA-Public Use
  Company Number: IT-SA-2016SA232498

PATIENT
  Age: 83 Year
  Sex: Male

DRUGS (2)
  1. METFORMIN [Suspect]
     Active Substance: METFORMIN HYDROCHLORIDE
     Indication: TYPE 2 DIABETES MELLITUS
     Route: 048
  2. IRBESARTAN. [Suspect]
     Active Substance: IRBESARTAN
     Indication: HYPERTENSION
     Route: 065

REACTIONS (20)
  - Blood urea increased [Recovered/Resolved]
  - Leukocytosis [Recovered/Resolved]
  - Oxygen saturation decreased [Recovered/Resolved]
  - Blood pH decreased [Recovered/Resolved]
  - Blood lactic acid increased [Recovered/Resolved]
  - Anion gap increased [Recovered/Resolved]
  - PCO2 decreased [Recovered/Resolved]
  - Somnolence [Recovered/Resolved]
  - Decreased appetite [Recovered/Resolved]
  - Lactic acidosis [Recovered/Resolved]
  - Dyspnoea [Recovered/Resolved]
  - C-reactive protein increased [Recovered/Resolved]
  - Acute kidney injury [Recovered/Resolved]
  - Hypercapnia [Recovered/Resolved]
  - Abdominal pain [Recovered/Resolved]
  - Blood creatinine increased [Recovered/Resolved]
  - Tachypnoea [Recovered/Resolved]
  - Blood bicarbonate decreased [Recovered/Resolved]
  - Diarrhoea [Recovered/Resolved]
  - Anuria [Recovered/Resolved]
